FAERS Safety Report 4766619-3 (Version None)
Quarter: 2005Q3

REPORT INFORMATION
  Report Type: 
  Country: None (occurrence: None)
  Receive Date: 20050912
  Receipt Date: 20050825
  Transmission Date: 20060218
  Serious: Yes (Disabling)
  Sender: FDA-Public Use
  Company Number: B0392225A

PATIENT
  Age: 79 Year
  Sex: Female

DRUGS (6)
  1. PAXIL [Suspect]
  2. DIGOXIN [Concomitant]
  3. ASPIRIN [Concomitant]
  4. ZOLPIDEM [Concomitant]
  5. HEPARIN [Concomitant]
  6. CO-TRIMOXAZOLE [Concomitant]

REACTIONS (3)
  - ABASIA [None]
  - DYSSTASIA [None]
  - TREMOR [None]
